FAERS Safety Report 19390649 (Version 5)
Quarter: 2021Q3

REPORT INFORMATION
  Report Type: Spontaneous
  Country: US (occurrence: US)
  Receive Date: 20210608
  Receipt Date: 20210715
  Transmission Date: 20211014
  Serious: No
  Sender: FDA-Public Use
  Company Number: US-JNJFOC-20210614432

PATIENT
  Sex: Female

DRUGS (2)
  1. IMODIUM MULTI?SYMPTOM RELIEF [Suspect]
     Active Substance: DIMETHICONE\LOPERAMIDE HYDROCHLORIDE
     Dosage: IMODIUM MULTI?SYMPTOM RELIEF CAPLET 30S?RECEIVED 1 CARTON FOR IMODIUM MULTI?SYMPTOM 30 CAPLETS
     Route: 048
  2. IMODIUM MULTI?SYMPTOM RELIEF [Suspect]
     Active Substance: DIMETHICONE\LOPERAMIDE HYDROCHLORIDE
     Indication: IRRITABLE BOWEL SYNDROME
     Dosage: IMODIUM MULTI?SYMPTOM RELIEF CAPLET 30S
     Route: 048

REACTIONS (2)
  - Product package associated injury [Unknown]
  - Product packaging issue [Unknown]
